FAERS Safety Report 5709790-9 (Version None)
Quarter: 2008Q2

REPORT INFORMATION
  Report Type: 
  Country: None (occurrence: None)
  Receive Date: 20080418
  Receipt Date: 20080408
  Transmission Date: 20081010
  Serious: Yes (Hospitalization, Other)
  Sender: FDA-Public Use
  Company Number: GB-JNJFOC-20080304538

PATIENT
  Sex: Male

DRUGS (6)
  1. MICONAZOLE [Suspect]
     Route: 061
  2. MICONAZOLE [Suspect]
     Indication: ORAL CANDIDIASIS
     Route: 061
  3. WARFARIN [Interacting]
     Indication: ATRIAL FIBRILLATION
     Route: 065
  4. GTN-S [Concomitant]
     Indication: ANGINA PECTORIS
     Route: 065
  5. ISMN [Concomitant]
     Indication: ANGINA PECTORIS
     Route: 065
  6. ATORVASTATIN [Concomitant]
     Indication: ANGINA PECTORIS
     Route: 065

REACTIONS (4)
  - CONTUSION [None]
  - DRUG INTERACTION [None]
  - HAEMATURIA [None]
  - INTERNATIONAL NORMALISED RATIO INCREASED [None]
